FAERS Safety Report 17155252 (Version 2)
Quarter: 2019Q4

REPORT INFORMATION
  Report Type: Spontaneous
  Country: HR (occurrence: HR)
  Receive Date: 20191215
  Receipt Date: 20191226
  Transmission Date: 20200122
  Serious: Yes (Hospitalization, Other)
  Sender: FDA-Public Use
  Company Number: HR-BAUSCH-BL-2019-065139

PATIENT
  Age: 66 Year
  Sex: Male

DRUGS (10)
  1. APIXABAN [Suspect]
     Active Substance: APIXABAN
     Indication: INTENTIONAL PRODUCT USE ISSUE
     Route: 065
  2. CLOPIDOGREL [Suspect]
     Active Substance: CLOPIDOGREL BISULFATE
     Indication: ACUTE MYOCARDIAL INFARCTION
     Route: 065
  3. ACETYLSALICYLIC ACID [Suspect]
     Active Substance: ASPIRIN
     Indication: ACUTE MYOCARDIAL INFARCTION
     Route: 065
  4. AMLODIPINE BESILATE [Suspect]
     Active Substance: AMLODIPINE BESYLATE
     Indication: ACUTE MYOCARDIAL INFARCTION
     Route: 065
  5. BISOPROLOL [Suspect]
     Active Substance: BISOPROLOL
     Indication: PRODUCT USED FOR UNKNOWN INDICATION
     Route: 065
  6. WARFARIN [Suspect]
     Active Substance: WARFARIN
     Indication: ACUTE MYOCARDIAL INFARCTION
     Dosage: BY SCHEME
     Route: 065
  7. SALBUTAMOL [Suspect]
     Active Substance: ALBUTEROL
     Indication: ACUTE MYOCARDIAL INFARCTION
     Dosage: AS NEEDED, AS NECESSARY
     Route: 055
  8. ATORVASTATIN CALCIUM. [Suspect]
     Active Substance: ATORVASTATIN CALCIUM
     Indication: ACUTE MYOCARDIAL INFARCTION
     Route: 065
  9. APIXABAN [Suspect]
     Active Substance: APIXABAN
     Indication: ACUTE MYOCARDIAL INFARCTION
     Route: 065
  10. CONTROLOC [Suspect]
     Active Substance: PANTOPRAZOLE SODIUM
     Indication: ACUTE MYOCARDIAL INFARCTION
     Route: 065

REACTIONS (3)
  - Intentional product use issue [Unknown]
  - Myocardial infarction [Unknown]
  - Drug ineffective [Unknown]

NARRATIVE: CASE EVENT DATE: 201902
